FAERS Safety Report 9450535 (Version 1)
Quarter: 2013Q3

REPORT INFORMATION
  Report Type: Spontaneous
  Country: DE (occurrence: DE)
  Receive Date: 20130809
  Receipt Date: 20130809
  Transmission Date: 20140515
  Serious: Yes (Hospitalization, Other)
  Sender: FDA-Public Use
  Company Number: DE-WATSON-2013-14075

PATIENT
  Age: 1 Day
  Sex: Male
  Weight: 3.7 kg

DRUGS (4)
  1. FENTANYL (UNKNOWN) [Suspect]
     Indication: PAIN
  2. NOVAMIN                            /00013301/ [Concomitant]
     Indication: PAIN
     Route: 065
  3. AMITRIPTYLINE [Concomitant]
     Indication: PAIN
     Dosage: UNK, UNKNOWN
     Route: 065
  4. GABAPENTIN [Concomitant]
     Indication: PAIN
     Dosage: UNK, UNKNOWN
     Route: 065

REACTIONS (6)
  - Acute respiratory failure [Recovered/Resolved]
  - Metabolic acidosis [Recovered/Resolved]
  - Hypocalcaemia [Recovered/Resolved]
  - Convulsion neonatal [Recovered/Resolved]
  - Drug withdrawal syndrome neonatal [Recovered/Resolved]
  - Foetal exposure during pregnancy [Recovered/Resolved]
